FAERS Safety Report 6607784-2 (Version None)
Quarter: 2010Q1

REPORT INFORMATION
  Report Type: 
  Country: None (occurrence: None)
  Receive Date: 20100212
  Receipt Date: 20091230
  Transmission Date: 20100710
  Serious: Yes (Other)
  Sender: FDA-Public Use
  Company Number: 1000011037

PATIENT
  Sex: Female

DRUGS (2)
  1. SAVELLA [Suspect]
  2. SAVELLA [Suspect]

REACTIONS (2)
  - GINGIVAL BLEEDING [None]
  - GINGIVAL RECESSION [None]
